FAERS Safety Report 24324101 (Version 2)
Quarter: 2024Q4

REPORT INFORMATION
  Report Type: Spontaneous
  Country: US (occurrence: US)
  Receive Date: 20240916
  Receipt Date: 20241107
  Transmission Date: 20250115
  Serious: Yes (Death, Other)
  Sender: PFIZER
  Company Number: US-PFIZER INC-202400256461

PATIENT
  Age: 77 Year
  Sex: Female

DRUGS (1)
  1. IBRANCE [Suspect]
     Active Substance: PALBOCICLIB
     Dosage: 125 MG, CYCLIC (1 TABLET DAILY, 21 DAYS ON AND 7 DAYS OFF)
     Dates: end: 20240913

REACTIONS (2)
  - Death [Fatal]
  - Neoplasm progression [Unknown]

NARRATIVE: CASE EVENT DATE: 20241102
